FAERS Safety Report 9579166 (Version 1)
Quarter: 2013Q4

REPORT INFORMATION
  Report Type: Spontaneous
  Country: US (occurrence: US)
  Receive Date: 20131001
  Receipt Date: 20131001
  Transmission Date: 20140711
  Serious: No
  Sender: FDA-Public Use
  Company Number: US-AMGEN-USASP2013017291

PATIENT
  Age: 66 Year
  Sex: Female
  Weight: 90.25 kg

DRUGS (2)
  1. ENBREL [Suspect]
     Indication: RHEUMATOID ARTHRITIS
     Dosage: UNK
     Route: 058
     Dates: start: 2011, end: 2011
  2. ENBREL [Suspect]

REACTIONS (3)
  - Erythema [Unknown]
  - Rash [Unknown]
  - Injection site reaction [Unknown]
